FAERS Safety Report 20979745 (Version 1)
Quarter: 2022Q2

REPORT INFORMATION
  Report Type: Spontaneous
  Country: US (occurrence: US)
  Receive Date: 20220620
  Receipt Date: 20220620
  Transmission Date: 20220720
  Serious: No
  Sender: FDA-Public Use
  Company Number: US-SANOFI-01148398

PATIENT
  Age: 77 Year
  Sex: Female

DRUGS (2)
  1. APIDRA SOLOSTAR [Suspect]
     Active Substance: INSULIN GLULISINE
     Indication: Type 2 diabetes mellitus
     Dosage: 24-71 UNITS, QD
  2. TOUJEO [Concomitant]
     Active Substance: INSULIN GLARGINE
     Dosage: 94 IU, QD

REACTIONS (1)
  - Cataract operation [Unknown]
